FAERS Safety Report 21023263 (Version 1)
Quarter: 2022Q2

REPORT INFORMATION
  Report Type: Spontaneous
  Country: US (occurrence: None)
  Receive Date: 20220629
  Receipt Date: 20220629
  Transmission Date: 20220721
  Serious: No
  Sender: FDA-Public Use
  Company Number: None

PATIENT
  Age: 87 Year
  Sex: Male

DRUGS (2)
  1. MIRTAZAPINE [Suspect]
     Active Substance: MIRTAZAPINE
     Indication: Neuropsychiatric symptoms
     Dosage: OTHER QUANTITY : 1 AND 1/2 TAB;?FREQUENCY : AT BEDTIME;?
     Route: 048
     Dates: start: 20130724, end: 20210428
  2. ESCITALOPRAM OXALATE [Suspect]
     Active Substance: ESCITALOPRAM OXALATE
     Indication: Neuropsychiatric symptoms
     Dosage: FREQUENCY : AT BEDTIME;?
     Route: 048
     Dates: start: 20210208

REACTIONS (1)
  - Agitation [None]
